FAERS Safety Report 6923066-3 (Version None)
Quarter: 2010Q3

REPORT INFORMATION
  Report Type: 
  Country: None (occurrence: None)
  Receive Date: 20100813
  Receipt Date: 20100804
  Transmission Date: 20110219
  Serious: Yes (Other)
  Sender: FDA-Public Use
  Company Number: BR-PFIZER INC-2010097834

PATIENT
  Age: 21 Year
  Sex: Female
  Weight: 55 kg

DRUGS (4)
  1. DEPO-PROVERA [Suspect]
     Indication: MENSTRUAL DISCOMFORT
     Dosage: 150 MG, EVERY 8 MONTHS
     Route: 030
     Dates: start: 20050101
  2. DEPO-PROVERA [Suspect]
     Indication: CONTRACEPTION
  3. DEPO-PROVERA [Suspect]
     Indication: MENSTRUAL CYCLE MANAGEMENT
  4. LEVOTHYROXINE SODIUM [Concomitant]
     Indication: THYROID DISORDER
     Dosage: 125 MG, 1X/DAY, 1 TABLET
     Dates: start: 20000101

REACTIONS (8)
  - AMENORRHOEA [None]
  - FLUID RETENTION [None]
  - INAPPROPRIATE SCHEDULE OF DRUG ADMINISTRATION [None]
  - MENSTRUAL DISORDER [None]
  - METRORRHAGIA [None]
  - PERIPHERAL VASCULAR DISORDER [None]
  - VARICOSE VEIN [None]
  - WEIGHT FLUCTUATION [None]
